FAERS Safety Report 9784667 (Version 5)
Quarter: 2014Q1

REPORT INFORMATION
  Report Type: Report from Study
  Country: US (occurrence: US)
  Receive Date: 20131226
  Receipt Date: 20140203
  Transmission Date: 20141002
  Serious: Yes (Death, Hospitalization, Disabling)
  Sender: FDA-Public Use
  Company Number: US-ACTELION-A-US2013-92199

PATIENT
  Age: 82 Year
  Sex: Female

DRUGS (7)
  1. TRACLEER [Suspect]
     Indication: PULMONARY ARTERIAL HYPERTENSION
     Dosage: 62.5 MG, BID
     Route: 048
     Dates: start: 20130409, end: 20140112
  2. TRACLEER [Suspect]
     Dosage: UNK
     Route: 048
     Dates: start: 20070308
  3. REMODULIN [Concomitant]
  4. TYVASO [Concomitant]
  5. ADCIRCA [Concomitant]
  6. SILDENAFIL [Concomitant]
  7. COUMADIN [Concomitant]

REACTIONS (15)
  - Death [Fatal]
  - Haemorrhage [Unknown]
  - Renal failure acute [Unknown]
  - Cardiac failure congestive [Unknown]
  - Fluid overload [Unknown]
  - Dyspnoea [Unknown]
  - Swelling [Unknown]
  - Oedema peripheral [Unknown]
  - Weight increased [Unknown]
  - Anaemia [Unknown]
  - Occult blood positive [Unknown]
  - Fatigue [Unknown]
  - Intestinal mass [Unknown]
  - Asthenia [Unknown]
  - Blood pressure decreased [Unknown]
